FAERS Safety Report 18908534 (Version 1)
Quarter: 2021Q1

REPORT INFORMATION
  Report Type: Spontaneous
  Country: DE (occurrence: DE)
  Receive Date: 20210218
  Receipt Date: 20210218
  Transmission Date: 20210420
  Serious: Yes (Other)
  Sender: FDA-Public Use
  Company Number: DE-ACCORD-217635

PATIENT
  Age: 45 Year

DRUGS (1)
  1. MITOMYCIN. [Suspect]
     Active Substance: MITOMYCIN
     Indication: BLADDER CANCER
     Dosage: TOTAL OF EIGHT WEEKLY MMC INSTILLATIONS OVER A PERIOD OF TWO MONTHS (SEP?2018 TO NOV?2018)
     Dates: start: 201808

REACTIONS (2)
  - Urticaria [Unknown]
  - Angioedema [Unknown]
